FAERS Safety Report 24562720 (Version 3)
Quarter: 2025Q1

REPORT INFORMATION
  Report Type: Spontaneous
  Country: NZ (occurrence: NZ)
  Receive Date: 20241029
  Receipt Date: 20250127
  Transmission Date: 20250409
  Serious: Yes (Hospitalization, Other)
  Sender: NOVO NORDISK
  Company Number: NZ-NOVOPROD-1303440

PATIENT
  Sex: Male

DRUGS (1)
  1. SEMAGLUTIDE [Suspect]
     Active Substance: SEMAGLUTIDE
     Indication: Product used for unknown indication

REACTIONS (6)
  - Hypoglycaemic seizure [Unknown]
  - Blood insulin increased [Unknown]
  - C-reactive protein decreased [Unknown]
  - Malaise [Unknown]
  - Vomiting [Unknown]
  - Overdose [Unknown]
